FAERS Safety Report 5567064-3 (Version None)
Quarter: 2007Q4

REPORT INFORMATION
  Report Type: 
  Country: None (occurrence: None)
  Receive Date: 20071219
  Receipt Date: 20071211
  Transmission Date: 20080405
  Serious: Yes (Other)
  Sender: FDA-Public Use
  Company Number: US-ALLERGAN-0713721US

PATIENT
  Sex: Male

DRUGS (7)
  1. ACULAR [Suspect]
     Indication: PROPHYLAXIS
     Dosage: UNK, QID
     Route: 047
  2. ACULAR [Suspect]
     Indication: POSTOPERATIVE CARE
  3. MAXITROL [Concomitant]
     Indication: POSTOPERATIVE CARE
     Dosage: UNK, QID
     Route: 047
  4. CIPROFLOXACIN [Concomitant]
     Dosage: UNK, QID
     Route: 047
  5. BACITRACIN W/POLYMYXIN [Concomitant]
     Dosage: UNK, QHS
     Route: 047
  6. PREDNISOLONE ACETATE, 1.0% [Concomitant]
     Dosage: UNK, QID
     Route: 047
  7. MURO-128 [Concomitant]
     Dosage: UNK, QHS
     Route: 047

REACTIONS (4)
  - CORNEAL EROSION [None]
  - CORNEAL OEDEMA [None]
  - ENDOPHTHALMITIS [None]
  - WOUND DEHISCENCE [None]
